FAERS Safety Report 11170476 (Version 3)
Quarter: 2015Q4

REPORT INFORMATION
  Report Type: Spontaneous
  Country: US (occurrence: US)
  Receive Date: 20150608
  Receipt Date: 20151117
  Transmission Date: 20160304
  Serious: Yes (Hospitalization, Other)
  Sender: FDA-Public Use
  Company Number: US-BAYER-2015-307704

PATIENT
  Age: 36 Year
  Sex: Female
  Weight: 72.56 kg

DRUGS (4)
  1. ZOLOFT [Concomitant]
     Active Substance: SERTRALINE HYDROCHLORIDE
  2. SERTRALINE [Concomitant]
     Active Substance: SERTRALINE HYDROCHLORIDE
     Indication: ANXIETY
     Dosage: 50 MG, UNK
     Dates: start: 2000
  3. MIRENA [Suspect]
     Active Substance: LEVONORGESTREL
     Indication: CONTRACEPTION
     Dosage: 20 MCG/24HR, CONT
     Route: 015
     Dates: start: 20100816, end: 20130612
  4. ADDERALL [Concomitant]
     Active Substance: AMPHETAMINE ASPARTATE\AMPHETAMINE SULFATE\DEXTROAMPHETAMINE SACCHARATE\DEXTROAMPHETAMINE SULFATE

REACTIONS (12)
  - Uterine perforation [None]
  - Hypertension [None]
  - Genital haemorrhage [None]
  - Abdominal pain lower [None]
  - Back pain [None]
  - Device dislocation [None]
  - Anxiety [None]
  - Headache [None]
  - Procedural pain [None]
  - Injury [None]
  - Abdominal pain [None]
  - Breast mass [None]

NARRATIVE: CASE EVENT DATE: 201305
